FAERS Safety Report 5958738-0 (Version None)
Quarter: 2008Q4

REPORT INFORMATION
  Report Type: 
  Country: None (occurrence: None)
  Receive Date: 20081119
  Receipt Date: 20081114
  Transmission Date: 20090506
  Serious: No
  Sender: FDA-Public Use
  Company Number: US-B.I. PHARMACEUTICALS,INC./RIDGEFIELD-2008-BP-17325AI

PATIENT
  Age: 19 Year
  Sex: Female

DRUGS (4)
  1. APTIVUS [Suspect]
     Indication: HIV INFECTION
     Route: 048
     Dates: start: 20080101
  2. RITONAVIR CAPSULES (VIRAMUNE REFERENCE) [Suspect]
     Indication: HIV INFECTION
     Dosage: 400MG
     Route: 048
     Dates: start: 20080101
  3. ENFUVIRTIDE [Concomitant]
     Indication: HIV INFECTION
     Route: 048
     Dates: start: 20080101
  4. EMTRICITABINE [Concomitant]
     Indication: HIV INFECTION
     Route: 048
     Dates: start: 20080101

REACTIONS (1)
  - DRUG SCREEN FALSE POSITIVE [None]
